FAERS Safety Report 11219470 (Version 2)
Quarter: 2015Q3

REPORT INFORMATION
  Report Type: Spontaneous
  Country: AT (occurrence: AT)
  Receive Date: 20150625
  Receipt Date: 20150811
  Transmission Date: 20151125
  Serious: Yes (Other)
  Sender: FDA-Public Use
  Company Number: AT-PFIZER INC-2015205885

PATIENT
  Age: 39 Year
  Sex: Male

DRUGS (3)
  1. LYRICA [Suspect]
     Active Substance: PREGABALIN
     Dosage: 225 MG, 2X/DAY
     Dates: end: 20150617
  2. THROMBO ASS [Concomitant]
     Active Substance: ASPIRIN
     Dosage: 1 DF, 1X/DAY
  3. SIRDALUD [Concomitant]
     Active Substance: TIZANIDINE
     Dosage: 6 MG, 1X/DAY

REACTIONS (1)
  - Sinus arrest [Recovered/Resolved]

NARRATIVE: CASE EVENT DATE: 20150612
